FAERS Safety Report 25459313 (Version 3)
Quarter: 2025Q3

REPORT INFORMATION
  Report Type: Report from Study
  Country: EU (occurrence: EU)
  Receive Date: 20250620
  Receipt Date: 20250827
  Transmission Date: 20251021
  Serious: Yes (Hospitalization)
  Sender: SANOFI AVENTIS
  Company Number: EU-SA-2025SA170524

PATIENT
  Age: 62 Year
  Sex: Male

DRUGS (65)
  1. ISATUXIMAB [Suspect]
     Active Substance: ISATUXIMAB
     Indication: Plasma cell myeloma refractory
     Dosage: 770 MG, QW
     Dates: start: 20230906, end: 20231003
  2. ISATUXIMAB [Suspect]
     Active Substance: ISATUXIMAB
     Dosage: 770 MG, BIW
     Dates: start: 20231004, end: 20231031
  3. ISATUXIMAB [Suspect]
     Active Substance: ISATUXIMAB
     Dosage: 770 MG, BIW
     Dates: start: 20231102, end: 20231129
  4. ISATUXIMAB [Suspect]
     Active Substance: ISATUXIMAB
     Dosage: 770 MG, BIW
     Dates: start: 20231213, end: 20240109
  5. ISATUXIMAB [Suspect]
     Active Substance: ISATUXIMAB
     Dosage: 770 MG, BIW
     Dates: start: 20240110, end: 20240206
  6. ISATUXIMAB [Suspect]
     Active Substance: ISATUXIMAB
     Dosage: 770 MG, BIW
     Dates: start: 20240221, end: 20240319
  7. ISATUXIMAB [Suspect]
     Active Substance: ISATUXIMAB
     Dosage: 770 MG, QD
     Dates: start: 20240320, end: 20240402
  8. ISATUXIMAB [Suspect]
     Active Substance: ISATUXIMAB
     Dosage: 770 MG, BIW
     Dates: start: 20240417, end: 20240514
  9. ISATUXIMAB [Suspect]
     Active Substance: ISATUXIMAB
     Dosage: 770 MG, BIW
     Dates: start: 20240515, end: 20240611
  10. ISATUXIMAB [Suspect]
     Active Substance: ISATUXIMAB
     Dosage: 770 MG, BIW
     Dates: start: 20240612, end: 20240709
  11. ISATUXIMAB [Suspect]
     Active Substance: ISATUXIMAB
     Dosage: 770 MG, BIW
     Dates: start: 20240710, end: 20240806
  12. ISATUXIMAB [Suspect]
     Active Substance: ISATUXIMAB
     Dosage: 770 MG, BIW
     Dates: start: 20240807, end: 20240903
  13. ISATUXIMAB [Suspect]
     Active Substance: ISATUXIMAB
     Dosage: 770 MG, BIW
     Dates: start: 20240904, end: 20241001
  14. ISATUXIMAB [Suspect]
     Active Substance: ISATUXIMAB
     Dosage: 770 MG, BIW
     Dates: start: 20241002, end: 20241019
  15. ISATUXIMAB [Suspect]
     Active Substance: ISATUXIMAB
     Dosage: 770 MG, BIW
     Dates: start: 20241030, end: 20241126
  16. ISATUXIMAB [Suspect]
     Active Substance: ISATUXIMAB
     Dosage: 770 MG, BIW
     Dates: start: 20241127, end: 20241224
  17. ISATUXIMAB [Suspect]
     Active Substance: ISATUXIMAB
     Dosage: 770 MG, BIW
     Dates: start: 20241226, end: 20250121
  18. ISATUXIMAB [Suspect]
     Active Substance: ISATUXIMAB
     Dosage: 770 MG, BIW
     Dates: start: 20250122, end: 20250218
  19. ISATUXIMAB [Suspect]
     Active Substance: ISATUXIMAB
     Dosage: 770 MG, BIW
     Dates: start: 20250219, end: 20250317
  20. DEXAMETHASONE [Suspect]
     Active Substance: DEXAMETHASONE
     Indication: Plasma cell myeloma refractory
     Dosage: 20 MG, BIW
     Dates: start: 20230906, end: 20231003
  21. DEXAMETHASONE [Suspect]
     Active Substance: DEXAMETHASONE
     Dosage: 20 MG, BIW
     Dates: start: 20231004, end: 20231031
  22. DEXAMETHASONE [Suspect]
     Active Substance: DEXAMETHASONE
     Dosage: 20 MG, BIW
     Dates: start: 20231102, end: 20231129
  23. DEXAMETHASONE [Suspect]
     Active Substance: DEXAMETHASONE
     Dosage: 20 MG, BIW
     Dates: start: 20231213, end: 20240109
  24. DEXAMETHASONE [Suspect]
     Active Substance: DEXAMETHASONE
     Dosage: 20 MG, BIW
     Dates: start: 20240110, end: 20240206
  25. DEXAMETHASONE [Suspect]
     Active Substance: DEXAMETHASONE
     Dosage: 20 MG, BIW
     Dates: start: 20240221, end: 20240319
  26. DEXAMETHASONE [Suspect]
     Active Substance: DEXAMETHASONE
     Dosage: 20 MG, BIW
     Dates: start: 20240320, end: 20240402
  27. DEXAMETHASONE [Suspect]
     Active Substance: DEXAMETHASONE
     Dosage: 20 MG, BIW
     Dates: start: 20240417, end: 20240514
  28. DEXAMETHASONE [Suspect]
     Active Substance: DEXAMETHASONE
     Dosage: 20 MG, BIW
     Dates: start: 20240515, end: 20240611
  29. DEXAMETHASONE [Suspect]
     Active Substance: DEXAMETHASONE
     Dosage: 20 MG, BIW
     Dates: start: 20240612, end: 20240709
  30. DEXAMETHASONE [Suspect]
     Active Substance: DEXAMETHASONE
     Dosage: 20 MG, BIW
     Dates: start: 20240710, end: 20240806
  31. DEXAMETHASONE [Suspect]
     Active Substance: DEXAMETHASONE
     Dosage: 20 MG, BIW
     Dates: start: 20240807, end: 20240903
  32. DEXAMETHASONE [Suspect]
     Active Substance: DEXAMETHASONE
     Dosage: 20 MG, BIW
     Dates: start: 20240904, end: 20241001
  33. DEXAMETHASONE [Suspect]
     Active Substance: DEXAMETHASONE
     Dosage: 20 MG, BIW
     Dates: start: 20241002, end: 20241029
  34. DEXAMETHASONE [Suspect]
     Active Substance: DEXAMETHASONE
     Dosage: 20 MG, BIW
     Dates: start: 20241030, end: 20241126
  35. DEXAMETHASONE [Suspect]
     Active Substance: DEXAMETHASONE
     Dosage: 20 MG, BIW
     Dates: start: 20241127, end: 20241224
  36. DEXAMETHASONE [Suspect]
     Active Substance: DEXAMETHASONE
     Dosage: 20 MG, BIW
     Dates: start: 20241226, end: 20250121
  37. DEXAMETHASONE [Suspect]
     Active Substance: DEXAMETHASONE
     Dosage: 20 MG, BIW
     Dates: start: 20250122, end: 20250218
  38. DEXAMETHASONE [Suspect]
     Active Substance: DEXAMETHASONE
     Dosage: 20 MG, BIW
     Dates: start: 20250219, end: 20250317
  39. CARFILZOMIB [Suspect]
     Active Substance: CARFILZOMIB
     Indication: Plasma cell myeloma refractory
     Dates: start: 20230906, end: 20231003
  40. CARFILZOMIB [Suspect]
     Active Substance: CARFILZOMIB
     Dates: start: 20230906, end: 20231003
  41. CARFILZOMIB [Suspect]
     Active Substance: CARFILZOMIB
     Dates: start: 20231004, end: 20231031
  42. CARFILZOMIB [Suspect]
     Active Substance: CARFILZOMIB
     Dates: start: 20231102, end: 20231129
  43. CARFILZOMIB [Suspect]
     Active Substance: CARFILZOMIB
     Dates: start: 20231213, end: 20240109
  44. CARFILZOMIB [Suspect]
     Active Substance: CARFILZOMIB
     Dates: start: 20240110, end: 20240206
  45. CARFILZOMIB [Suspect]
     Active Substance: CARFILZOMIB
     Dates: start: 20240221, end: 20240319
  46. CARFILZOMIB [Suspect]
     Active Substance: CARFILZOMIB
     Dates: start: 20240417, end: 20240514
  47. CARFILZOMIB [Suspect]
     Active Substance: CARFILZOMIB
     Dates: start: 20240320, end: 20240402
  48. CARFILZOMIB [Suspect]
     Active Substance: CARFILZOMIB
     Dates: start: 20240515, end: 20240611
  49. CARFILZOMIB [Suspect]
     Active Substance: CARFILZOMIB
     Dates: start: 20240612, end: 20240709
  50. CARFILZOMIB [Suspect]
     Active Substance: CARFILZOMIB
     Dates: start: 20240710, end: 20240806
  51. CARFILZOMIB [Suspect]
     Active Substance: CARFILZOMIB
     Dates: start: 20240807, end: 20240903
  52. CARFILZOMIB [Suspect]
     Active Substance: CARFILZOMIB
     Dates: start: 20240904, end: 20241001
  53. CARFILZOMIB [Suspect]
     Active Substance: CARFILZOMIB
     Dates: start: 20241002, end: 20241029
  54. CARFILZOMIB [Suspect]
     Active Substance: CARFILZOMIB
     Dates: start: 20241030, end: 20241126
  55. CARFILZOMIB [Suspect]
     Active Substance: CARFILZOMIB
     Dates: start: 20241127, end: 20241224
  56. CARFILZOMIB [Suspect]
     Active Substance: CARFILZOMIB
     Dates: start: 20241226, end: 20250121
  57. CARFILZOMIB [Suspect]
     Active Substance: CARFILZOMIB
     Dates: start: 20250122, end: 20250218
  58. CARFILZOMIB [Suspect]
     Active Substance: CARFILZOMIB
     Dates: start: 20250219, end: 20250317
  59. OMEPRAZOLE [Concomitant]
     Active Substance: OMEPRAZOLE
     Indication: Prophylaxis
  60. MONTELUKAST [Concomitant]
     Active Substance: MONTELUKAST
     Indication: Prophylaxis
     Dates: start: 20231213
  61. ACYCLOVIR [Concomitant]
     Active Substance: ACYCLOVIR
     Indication: Prophylaxis
  62. ZOLEDRONIC ACID [Concomitant]
     Active Substance: ZOLEDRONIC ACID
     Indication: Prophylaxis
  63. CALCIUM CARBONATE [Concomitant]
     Active Substance: CALCIUM CARBONATE
     Indication: Prophylaxis
  64. ACETAMINOPHEN [Concomitant]
     Active Substance: ACETAMINOPHEN
     Indication: Premedication
     Dates: start: 20230913
  65. DEXCHLORPHENIRAMINE [Concomitant]
     Active Substance: DEXCHLORPHENIRAMINE
     Indication: Premedication
     Dates: start: 20230913

REACTIONS (1)
  - Respiratory tract infection [Recovered/Resolved]

NARRATIVE: CASE EVENT DATE: 20250324
